FAERS Safety Report 16130669 (Version 1)
Quarter: 2019Q1

REPORT INFORMATION
  Report Type: Spontaneous
  Country: US (occurrence: US)
  Receive Date: 20190328
  Receipt Date: 20190328
  Transmission Date: 20190418
  Serious: No
  Sender: FDA-Public Use
  Company Number: US-BAUSCH-BL-2019-008332

PATIENT
  Age: 10 Year
  Sex: Female
  Weight: 52.21 kg

DRUGS (1)
  1. TOBRAMYCIN AND DEXAMETHASONE [Suspect]
     Active Substance: DEXAMETHASONE\TOBRAMYCIN
     Indication: CONJUNCTIVITIS ALLERGIC
     Dosage: 2 DROPS IN THE LEFT EYE THREE TIMES DAILY
     Route: 047
     Dates: start: 20190220, end: 20190305

REACTIONS (7)
  - Vision blurred [Recovering/Resolving]
  - Eye irritation [Recovering/Resolving]
  - Photophobia [Recovering/Resolving]
  - Visual impairment [Recovering/Resolving]
  - Eye inflammation [Recovering/Resolving]
  - Eyelid margin crusting [Recovering/Resolving]
  - Eye disorder [Recovering/Resolving]

NARRATIVE: CASE EVENT DATE: 201902
